FAERS Safety Report 5693686-5 (Version None)
Quarter: 2008Q2

REPORT INFORMATION
  Report Type: 
  Country: None (occurrence: None)
  Receive Date: 20080403
  Receipt Date: 20080328
  Transmission Date: 20081010
  Serious: Yes (Hospitalization)
  Sender: FDA-Public Use
  Company Number: JP-ASTRAZENECA-2007AP07396

PATIENT
  Age: 11 Month
  Sex: Female
  Weight: 8 kg

DRUGS (10)
  1. PULMICORT [Suspect]
     Indication: ASTHMA
     Route: 055
     Dates: start: 20070828
  2. MUCODYNE [Concomitant]
     Indication: ASTHMA
     Route: 048
     Dates: start: 20070801
  3. MUCOSAL [Concomitant]
     Indication: ASTHMA
     Route: 048
     Dates: start: 20070801
  4. ANHIBA [Concomitant]
     Dosage: AS REQUIRED
     Route: 054
     Dates: start: 20070801
  5. HOKUNALIN:TAPE [Concomitant]
     Indication: ASTHMA
     Route: 062
     Dates: start: 20070801
  6. ASVERIN [Concomitant]
     Indication: ASTHMA
     Route: 048
     Dates: start: 20070801
  7. MIYARISAN BM [Concomitant]
     Indication: GASTROENTERITIS
     Route: 048
     Dates: start: 20071028
  8. SOLITA-T NO.3 [Concomitant]
     Indication: ASTHMA
     Dosage: AS REQUIRED
     Route: 041
     Dates: start: 20071028
  9. BIOFERMIN R [Concomitant]
     Indication: ENTEROCOLITIS
     Dosage: AS REQUIRED
     Route: 048
     Dates: start: 20071031
  10. ADSORBIN [Concomitant]
     Indication: GASTROENTERITIS
     Dosage: AS REQUIRED
     Route: 048
     Dates: start: 20071031, end: 20080117

REACTIONS (1)
  - PNEUMONIA [None]
